FAERS Safety Report 9736489 (Version 1)
Quarter: 2013Q4

REPORT INFORMATION
  Report Type: Spontaneous
  Country: IN (occurrence: IN)
  Receive Date: 20131206
  Receipt Date: 20131206
  Transmission Date: 20140711
  Serious: Yes (Hospitalization, Other)
  Sender: FDA-Public Use
  Company Number: IN-SA-2013SA124914

PATIENT
  Age: 28 Year
  Sex: Female

DRUGS (11)
  1. CEFEPIME HYDROCHLORIDE [Suspect]
     Indication: URINARY TRACT INFECTION
     Dosage: INFUSION
     Route: 065
  2. CEFEPIME HYDROCHLORIDE [Suspect]
     Indication: URINARY TRACT INFECTION
     Dosage: TEST DOSE
     Route: 065
  3. CEFEPIME HYDROCHLORIDE [Suspect]
     Indication: URINARY TRACT INFECTION
     Dosage: INFUSION
     Route: 065
  4. PHENYTOIN [Suspect]
     Indication: GRAND MAL CONVULSION
     Route: 065
  5. PHENYTOIN [Suspect]
     Indication: GRAND MAL CONVULSION
     Route: 065
  6. ISONIAZID [Suspect]
     Indication: TUBERCULOSIS
     Route: 065
  7. RIFAMPICIN [Suspect]
     Indication: TUBERCULOSIS
     Route: 065
  8. PYRAZINAMIDE [Suspect]
     Indication: TUBERCULOSIS
     Route: 065
  9. ETHAMBUTOL [Suspect]
     Indication: TUBERCULOSIS
     Route: 065
  10. AMIKACIN [Concomitant]
     Indication: PLEURAL EFFUSION
  11. ETHAMBUTOL [Concomitant]
     Indication: PLEURAL EFFUSION

REACTIONS (19)
  - Stevens-Johnson syndrome [Recovering/Resolving]
  - Pyrexia [Recovering/Resolving]
  - Pruritus [Recovering/Resolving]
  - Rash erythematous [Recovering/Resolving]
  - Mouth ulceration [Recovering/Resolving]
  - Skin exfoliation [Recovering/Resolving]
  - Pigmentation disorder [Recovering/Resolving]
  - Skin exfoliation [Recovering/Resolving]
  - Burning sensation [Recovering/Resolving]
  - Chills [Recovering/Resolving]
  - Dermatitis [Recovering/Resolving]
  - Vomiting [Recovering/Resolving]
  - Asthenia [Recovering/Resolving]
  - Rash generalised [Recovering/Resolving]
  - Tinea versicolour [Recovering/Resolving]
  - Drug-induced liver injury [Unknown]
  - Aspartate aminotransferase increased [Unknown]
  - Alanine aminotransferase increased [Unknown]
  - Inappropriate schedule of drug administration [Unknown]
